FAERS Safety Report 4644728-7 (Version None)
Quarter: 2005Q2

REPORT INFORMATION
  Report Type: 
  Country: None (occurrence: None)
  Receive Date: 20050422
  Receipt Date: 20050415
  Transmission Date: 20051028
  Serious: Yes (Hospitalization)
  Sender: FDA-Public Use
  Company Number: TAP2004Q01660

PATIENT
  Age: 52 Year
  Sex: Female

DRUGS (10)
  1. PREVACID [Suspect]
     Indication: DIARRHOEA
     Dosage: 30 MG, 1 IN 1 D, PER ORAL
     Route: 048
     Dates: start: 20031001, end: 20031201
  2. PREVACID [Suspect]
     Indication: NAUSEA
     Dosage: 30 MG, 1 IN 1 D, PER ORAL
     Route: 048
     Dates: start: 20031001, end: 20031201
  3. CELECOXIB (CELECOXIB) [Concomitant]
  4. LEVOTHYROXINE SODIUM [Concomitant]
  5. LAMOTRIGINE [Concomitant]
  6. QUETIAPINE FUMARATE [Concomitant]
  7. ATORVASTATIN CALCIUM [Concomitant]
  8. ZOLPIDEM TARTRATE [Concomitant]
  9. RAMIPRIL [Concomitant]
  10. FOLACIN 2.5 MG/CYANOCOBALAMIN 1 MG/PYRIDOXINE 25 MG COMBINATION (B-KOM [Concomitant]

REACTIONS (2)
  - CARCINOID TUMOUR OF THE STOMACH [None]
  - CHOLELITHIASIS [None]
